FAERS Safety Report 6032776-4 (Version None)
Quarter: 2009Q1

REPORT INFORMATION
  Report Type: 
  Country: None (occurrence: None)
  Receive Date: 20090109
  Receipt Date: 20081209
  Transmission Date: 20090719
  Serious: No
  Sender: FDA-Public Use
  Company Number: US-BAYER-200833471NA

PATIENT
  Age: 39 Year
  Sex: Female

DRUGS (3)
  1. ULTRAVIST 300 [Suspect]
     Indication: HAEMATURIA
     Dosage: TOTAL DAILY DOSE: 100  ML  UNIT DOSE: 150 ML
     Route: 042
     Dates: start: 20080824, end: 20080824
  2. GASTRIC MEDICINES [Concomitant]
  3. IRON SUPPLEMENT [Concomitant]

REACTIONS (2)
  - RASH [None]
  - URTICARIA [None]
